FAERS Safety Report 5431691-4 (Version None)
Quarter: 2007Q3

REPORT INFORMATION
  Report Type: 
  Country: None (occurrence: None)
  Receive Date: 20070830
  Receipt Date: 20070823
  Transmission Date: 20080115
  Serious: Yes (Death, Hospitalization)
  Sender: FDA-Public Use
  Company Number: US-SANOFI-SYNTHELABO-F03200700147

PATIENT
  Age: 70 Year
  Sex: Female
  Weight: 50.8 kg

DRUGS (6)
  1. OXALIPLATIN [Suspect]
     Indication: CARCINOID TUMOUR OF THE APPENDIX
     Route: 033
     Dates: start: 20070618, end: 20070618
  2. FOLIC ACID [Concomitant]
     Dosage: UNK
     Route: 048
  3. ASPIRIN [Concomitant]
     Route: 048
  4. CENTRUM [Concomitant]
     Dosage: UNK
     Route: 048
  5. FOSAMAX [Concomitant]
     Route: 048
  6. LISINOPRIL [Concomitant]
     Route: 048

REACTIONS (10)
  - ABDOMINAL ADHESIONS [None]
  - BILIRUBIN CONJUGATED INCREASED [None]
  - CENTRAL LINE INFECTION [None]
  - HAEMOGLOBIN DECREASED [None]
  - INTESTINAL OBSTRUCTION [None]
  - LEUKOCYTOSIS [None]
  - NEUTROPENIA [None]
  - PELVIC HAEMATOMA [None]
  - PELVIC INFECTION [None]
  - THROMBOCYTOPENIA [None]
